FAERS Safety Report 9168953 (Version 2)
Quarter: 2013Q2

REPORT INFORMATION
  Report Type: Spontaneous
  Country: JP (occurrence: JP)
  Receive Date: 20130318
  Receipt Date: 20130523
  Transmission Date: 20140414
  Serious: Yes (Other)
  Sender: FDA-Public Use
  Company Number: JP-ASTRAZENECA-2013SE16198

PATIENT
  Age: 82 Year
  Sex: Female

DRUGS (5)
  1. NEXIUM [Suspect]
     Indication: GASTROOESOPHAGEAL REFLUX DISEASE
     Route: 048
     Dates: start: 20130221
  2. TRAVELMIN [Concomitant]
     Route: 065
  3. BLOPRESS [Concomitant]
     Route: 065
  4. NORVASC [Concomitant]
     Route: 065
  5. ADRENAL HORMONE PREPARATIONS [Concomitant]
     Route: 065

REACTIONS (1)
  - Delusion [Recovering/Resolving]
